FAERS Safety Report 6046684-6 (Version None)
Quarter: 2009Q1

REPORT INFORMATION
  Report Type: 
  Country: None (occurrence: None)
  Receive Date: 20090122
  Receipt Date: 20080919
  Transmission Date: 20090719
  Serious: Yes (Death, Other)
  Sender: FDA-Public Use
  Company Number: GB-CELGENEUS-167-20484-08121639

PATIENT

DRUGS (7)
  1. LMWH [Suspect]
     Route: 064
  2. LMWH [Suspect]
     Route: 064
  3. ACETAZOLAMIDE [Suspect]
     Route: 064
  4. ACETYLSALICYLIC ACID SRT [Suspect]
     Route: 064
  5. ACETYLSALICYLIC ACID SRT [Suspect]
  6. CARBAMAZEPINE [Suspect]
     Route: 064
  7. LAMOTRIGINE [Suspect]
     Route: 064

REACTIONS (4)
  - CARDIAC ANEURYSM [None]
  - CARDIAC TAMPONADE [None]
  - DRUG EXPOSURE DURING PREGNANCY [None]
  - PERICARDIAL HAEMORRHAGE [None]
